FAERS Safety Report 14176939 (Version 1)
Quarter: 2017Q4

REPORT INFORMATION
  Report Type: Spontaneous
  Country: US (occurrence: US)
  Receive Date: 20171110
  Receipt Date: 20171110
  Transmission Date: 20180321
  Serious: Yes (Other)
  Sender: FDA-Public Use
  Company Number: None

PATIENT
  Age: 6 Month
  Sex: Male

DRUGS (3)
  1. CLOZAPINE. [Suspect]
     Active Substance: CLOZAPINE
     Indication: SCHIZOPHRENIA
     Route: 048
     Dates: start: 20170613, end: 20171110
  2. TOPIRIMATE [Concomitant]
     Active Substance: TOPIRAMATE
  3. RISPERIDONE. [Concomitant]
     Active Substance: RISPERIDONE

REACTIONS (3)
  - Product colour issue [None]
  - Product substitution issue [None]
  - Drug level increased [None]

NARRATIVE: CASE EVENT DATE: 20171103
